FAERS Safety Report 20283273 (Version 3)
Quarter: 2022Q1

REPORT INFORMATION
  Report Type: Spontaneous
  Country: US (occurrence: US)
  Receive Date: 20220103
  Receipt Date: 20220228
  Transmission Date: 20220423
  Serious: No
  Sender: FDA-Public Use
  Company Number: US-BAUSCH-BL-2021-043071

PATIENT
  Age: 34 Year
  Sex: Female

DRUGS (1)
  1. ZEGERID [Suspect]
     Active Substance: OMEPRAZOLE\SODIUM BICARBONATE
     Indication: Product used for unknown indication
     Dosage: 40/1680 MILLIGRAMS
     Route: 048

REACTIONS (2)
  - Therapeutic product effect decreased [Unknown]
  - Product odour abnormal [Unknown]
